FAERS Safety Report 4608892-8 (Version None)
Quarter: 2005Q1

REPORT INFORMATION
  Report Type: 
  Country: None (occurrence: None)
  Receive Date: 20050309
  Receipt Date: 20050224
  Transmission Date: 20050727
  Serious: Yes (Life-Threatening, Hospitalization, Other)
  Sender: FDA-Public Use
  Company Number: 2005037328

PATIENT
  Age: 74 Year
  Sex: Male

DRUGS (7)
  1. BEXTRA [Suspect]
     Indication: PAIN
     Dosage: 40 MG (40 MG, 1 IN 1 D), ORAL
     Route: 048
     Dates: end: 20050208
  2. LISINOPRIL [Suspect]
     Indication: CARDIAC FAILURE
     Dosage: 20 MG( 20 MG, 1 IN 1 D), ORAL
     Route: 048
     Dates: end: 20050208
  3. INSULIN [Concomitant]
  4. DIPYRIDAMOLE [Concomitant]
  5. OMEPRAZOLE [Concomitant]
  6. METFORMIN HCL [Concomitant]
  7. CIPROFLOXACIN [Concomitant]

REACTIONS (5)
  - BALANCE DISORDER [None]
  - CEREBROVASCULAR ACCIDENT [None]
  - DISORIENTATION [None]
  - HEMIPARESIS [None]
  - RENAL FAILURE [None]
